FAERS Safety Report 4666719-2 (Version None)
Quarter: 2005Q2

REPORT INFORMATION
  Report Type: 
  Country: None (occurrence: None)
  Receive Date: 20050518
  Receipt Date: 20040803
  Transmission Date: 20051028
  Serious: No
  Sender: FDA-Public Use
  Company Number: 2004227670US

PATIENT
  Sex: Female

DRUGS (1)
  1. PROVERA [Suspect]
     Route: 065

REACTIONS (1)
  - BREAST MASS [None]
